FAERS Safety Report 9822500 (Version 1)
Quarter: 2014Q1

REPORT INFORMATION
  Report Type: Spontaneous
  Country: US (occurrence: US)
  Receive Date: 20140116
  Receipt Date: 20140116
  Transmission Date: 20141002
  Serious: No
  Sender: FDA-Public Use
  Company Number: US-ORAPHARMA-20110512338

PATIENT
  Age: 60 Year
  Sex: Male
  Weight: 72.58 kg

DRUGS (1)
  1. ARESTIN [Suspect]
     Indication: GINGIVITIS
     Route: 048
     Dates: start: 20110523

REACTIONS (4)
  - Local swelling [Not Recovered/Not Resolved]
  - Neck pain [Not Recovered/Not Resolved]
  - Headache [Not Recovered/Not Resolved]
  - Spinal pain [Not Recovered/Not Resolved]
